FAERS Safety Report 16975887 (Version 1)
Quarter: 2019Q4

REPORT INFORMATION
  Report Type: Spontaneous
  Country: GB (occurrence: GB)
  Receive Date: 20191030
  Receipt Date: 20191030
  Transmission Date: 20200122
  Serious: Yes (Other)
  Sender: FDA-Public Use
  Company Number: GB-MYLANLABS-2019M1102896

PATIENT
  Age: 70 Year

DRUGS (1)
  1. MYCOPHENOLATE MOFETIL. [Suspect]
     Active Substance: MYCOPHENOLATE MOFETIL
     Indication: INTERSTITIAL LUNG DISEASE
     Dosage: 2000 MILLIGRAM, QD (500 MG, QID)
     Route: 065

REACTIONS (2)
  - Product use in unapproved indication [Unknown]
  - Neutropenia [Unknown]
